FAERS Safety Report 6824885-4 (Version None)
Quarter: 2010Q3

REPORT INFORMATION
  Report Type: 
  Country: None (occurrence: None)
  Receive Date: 20100708
  Receipt Date: 20061120
  Transmission Date: 20110219
  Serious: No
  Sender: FDA-Public Use
  Company Number: US-PFIZER INC-2006147371

PATIENT
  Sex: Male
  Weight: 104.33 kg

DRUGS (11)
  1. CHANTIX [Suspect]
     Indication: SMOKING CESSATION THERAPY
     Route: 048
     Dates: start: 20061118
  2. METOPROLOL [Concomitant]
     Route: 048
  3. DIGITEK [Concomitant]
     Route: 048
  4. AMIODARONE HCL [Concomitant]
     Route: 048
  5. ALTACE [Concomitant]
     Route: 048
  6. VYTORIN [Concomitant]
     Indication: BLOOD CHOLESTEROL
     Route: 048
  7. WARFARIN SODIUM [Concomitant]
     Indication: ANTICOAGULANT THERAPY
     Route: 048
  8. VICODIN [Concomitant]
     Indication: PAIN
     Route: 048
  9. NEURONTIN [Concomitant]
     Indication: NERVE INJURY
     Route: 048
  10. HUMALOG [Concomitant]
     Route: 058
  11. HUMALIN [Concomitant]
     Route: 058

REACTIONS (1)
  - NAUSEA [None]
